FAERS Safety Report 4302505-0 (Version None)
Quarter: 2004Q1

REPORT INFORMATION
  Report Type: 
  Country: None (occurrence: None)
  Receive Date: 20040220
  Receipt Date: 20040210
  Transmission Date: 20041129
  Serious: Yes (Life-Threatening)
  Sender: FDA-Public Use
  Company Number: 2004AP00711

PATIENT
  Age: 2 Month
  Sex: Female

DRUGS (2)
  1. CHLOROPROCAINE HCL [Suspect]
     Indication: ANALGESIC EFFECT
     Dosage: 4 ML ED
     Route: 008
  2. GENERAL ANESTHETIC [Concomitant]

REACTIONS (6)
  - BLOOD PRESSURE DIASTOLIC DECREASED [None]
  - BLOOD PRESSURE SYSTOLIC DECREASED [None]
  - BRADYCARDIA [None]
  - CARDIOTOXICITY [None]
  - HYPOTENSION [None]
  - MEDICATION ERROR [None]
